FAERS Safety Report 15852181 (Version 2)
Quarter: 2019Q1

REPORT INFORMATION
  Report Type: Spontaneous
  Country: US (occurrence: US)
  Receive Date: 20190122
  Receipt Date: 20190225
  Transmission Date: 20190417
  Serious: Yes (Other)
  Sender: FDA-Public Use
  Company Number: US-BAYER-2019-012602

PATIENT
  Age: 21 Year
  Sex: Female
  Weight: 70.3 kg

DRUGS (1)
  1. KYLEENA [Suspect]
     Active Substance: LEVONORGESTREL
     Indication: CONTRACEPTION
     Dosage: 17.5 MCG/24HR, CONT
     Route: 015
     Dates: start: 20180128, end: 20190114

REACTIONS (4)
  - Pregnancy with contraceptive device [None]
  - Device dislocation [Recovered/Resolved]
  - Drug ineffective [Not Recovered/Not Resolved]
  - Abortion spontaneous [None]

NARRATIVE: CASE EVENT DATE: 20190114
